FAERS Safety Report 6212044-8 (Version None)
Quarter: 2009Q2

REPORT INFORMATION
  Report Type: 
  Country: None (occurrence: None)
  Receive Date: 20090529
  Receipt Date: 20090515
  Transmission Date: 20091009
  Serious: Yes (Disabling)
  Sender: FDA-Public Use
  Company Number: PI-04038

PATIENT
  Sex: Female

DRUGS (1)
  1. CHLORAPREP WITH TINT [Suspect]
     Indication: PREOPERATIVE CARE
     Dosage: 26 ML, ONCE, TOPICAL
     Route: 061
     Dates: start: 20090501

REACTIONS (4)
  - APPLICATION SITE DISCHARGE [None]
  - APPLICATION SITE SCAR [None]
  - APPLICATION SITE VESICLES [None]
  - ESCHAR [None]
